FAERS Safety Report 23758869 (Version 1)
Quarter: 2024Q2

REPORT INFORMATION
  Report Type: Other
  Country: US (occurrence: None)
  Receive Date: 20240418
  Receipt Date: 20240418
  Transmission Date: 20240715
  Serious: No
  Sender: FDA-Public Use
  Company Number: US-ROCHE-3295277

PATIENT
  Age: 83 Year
  Sex: Female

DRUGS (3)
  1. BEVACIZUMAB [Suspect]
     Active Substance: BEVACIZUMAB
     Indication: Glioblastoma
     Route: 065
  2. GADOTERIDOL [Concomitant]
     Active Substance: GADOTERIDOL
     Dosage: 0.15 MMOL/KG
  3. FERUMOXYTOL [Concomitant]
     Active Substance: FERUMOXYTOL
     Route: 042

REACTIONS (1)
  - Disease progression [Unknown]
